FAERS Safety Report 9502970 (Version 1)
Quarter: 2013Q3

REPORT INFORMATION
  Report Type: Report from Study
  Country: US (occurrence: US)
  Receive Date: 20130906
  Receipt Date: 20130906
  Transmission Date: 20140515
  Serious: Yes (Death)
  Sender: FDA-Public Use
  Company Number: PHEH2013US018681

PATIENT
  Age: 85 Year
  Sex: Female

DRUGS (1)
  1. GLEEVEC [Suspect]
     Dosage: 200 MG, ONCE DAILY
     Route: 048
     Dates: start: 20121101

REACTIONS (1)
  - Death [Fatal]
